FAERS Safety Report 7553933-1 (Version None)
Quarter: 2011Q2

REPORT INFORMATION
  Report Type: 
  Country: None (occurrence: None)
  Receive Date: 20110617
  Receipt Date: 20110603
  Transmission Date: 20111010
  Serious: Yes (Death, Hospitalization)
  Sender: FDA-Public Use
  Company Number: DE-CELGENEUS-062-21880-11052579

PATIENT
  Age: 80 Year
  Sex: Male

DRUGS (12)
  1. METOCLOPRAMIDE [Concomitant]
     Indication: NAUSEA
     Dosage: 90 MILLIGRAM
     Route: 048
     Dates: start: 20090801, end: 20110512
  2. ACETYLCYSTEINE [Concomitant]
     Dosage: 600 MILLIGRAM
     Route: 048
     Dates: start: 20090801, end: 20110512
  3. ENOXAPARIN SODIUM [Concomitant]
     Indication: THROMBOSIS PROPHYLAXIS
     Dosage: 40 MILLIGRAM
     Route: 058
     Dates: start: 20110401, end: 20110512
  4. KALINOR [Concomitant]
     Dosage: 3 TABLET
     Route: 048
     Dates: start: 20101101, end: 20110512
  5. OMEPRAZOLE [Concomitant]
     Dosage: 20 MILLIGRAM
     Route: 048
     Dates: start: 20091001, end: 20110512
  6. FENTANYL CITRATE [Concomitant]
     Indication: PAIN
     Route: 048
     Dates: start: 20110401, end: 20110512
  7. LYRICA [Concomitant]
     Indication: PAIN
     Dosage: 150 MILLIGRAM
     Route: 048
     Dates: start: 20110501, end: 20110512
  8. DEXAMETHASONE [Concomitant]
     Dosage: .7143 TABLET
     Route: 048
     Dates: start: 20110301, end: 20110512
  9. REVLIMID [Suspect]
     Indication: MULTIPLE MYELOMA
     Dosage: 15 MILLIGRAM
     Route: 048
     Dates: start: 20110405, end: 20110512
  10. ACCUZIDE [Concomitant]
     Indication: HYPERTENSION
     Dosage: 20MG/12.5MG DAILY.
     Route: 048
     Dates: start: 20090801, end: 20110512
  11. FENTANYL-100 [Concomitant]
     Indication: PAIN
     Dosage: 41.6667 MICROGRAM
     Route: 062
     Dates: start: 20090801, end: 20110512
  12. ACYCLOVIR [Concomitant]
     Indication: HERPES ZOSTER
     Dosage: 800 MILLIGRAM
     Route: 048
     Dates: start: 20100601, end: 20110512

REACTIONS (8)
  - PANCYTOPENIA [None]
  - HYPOCALCAEMIA [None]
  - PNEUMONIA [None]
  - HYPOTENSION [None]
  - SYSTEMIC INFLAMMATORY RESPONSE SYNDROME [None]
  - HYPOKALAEMIA [None]
  - URINARY TRACT INFECTION [None]
  - DEHYDRATION [None]
